FAERS Safety Report 4399293-9 (Version None)
Quarter: 2004Q3

REPORT INFORMATION
  Report Type: 
  Country: None (occurrence: None)
  Receive Date: 20040712
  Receipt Date: 20040707
  Transmission Date: 20050211
  Serious: Yes (Death)
  Sender: FDA-Public Use
  Company Number: TCI2004A02334

PATIENT
  Age: 71 Year
  Sex: Male

DRUGS (1)
  1. TAKEPRON CAPSULES 30 (LANSOPRAZOLE) (CAPSULES)   PRIOR USE: YES [Suspect]
     Indication: DUODENAL ULCER
     Dosage: 30 MG (30 MG, 1 IN 1 D) PER ORAL
     Route: 048
     Dates: start: 20040106, end: 20040121

REACTIONS (16)
  - AEROMONA INFECTION [None]
  - AUTOIMMUNE HEPATITIS [None]
  - CHOLECYSTITIS [None]
  - CHOLESTASIS [None]
  - CULTURE STOOL POSITIVE [None]
  - CULTURE URINE POSITIVE [None]
  - DEPRESSED LEVEL OF CONSCIOUSNESS [None]
  - FIBROSIS [None]
  - HEPATIC FAILURE [None]
  - HEPATIC NECROSIS [None]
  - HEPATITIS ACUTE [None]
  - HEPATITIS CHRONIC ACTIVE [None]
  - HEPATOCELLULAR DAMAGE [None]
  - LYMPHOCYTIC INFILTRATION [None]
  - PSEUDOMONAS INFECTION [None]
  - SMALL INTESTINAL HAEMORRHAGE [None]
